FAERS Safety Report 5601655-6 (Version None)
Quarter: 2008Q1

REPORT INFORMATION
  Report Type: 
  Country: None (occurrence: None)
  Receive Date: 20080124
  Receipt Date: 20080107
  Transmission Date: 20080703
  Serious: Yes (Death)
  Sender: FDA-Public Use
  Company Number: CA-BOEHRINGER INGELHEIM PHARMACEUTICALS, INC.-2008-CN-00022CN

PATIENT
  Sex: Female

DRUGS (7)
  1. SPIRIVA [Suspect]
     Indication: CHRONIC OBSTRUCTIVE PULMONARY DISEASE
     Dates: start: 20070501
  2. DIGOXIN [Concomitant]
  3. DILTIAZEM HCL [Concomitant]
  4. FUROSEMIDE [Concomitant]
  5. METOLAZONE [Concomitant]
  6. PREDNISONE TAB [Concomitant]
  7. ALBUTEROL [Concomitant]

REACTIONS (1)
  - RESPIRATORY FAILURE [None]
